FAERS Safety Report 8990032 (Version 6)
Quarter: 2014Q1

REPORT INFORMATION
  Report Type: Spontaneous
  Country: AR (occurrence: AR)
  Receive Date: 20121228
  Receipt Date: 20140109
  Transmission Date: 20141002
  Serious: Yes (Other)
  Sender: FDA-Public Use
  Company Number: AR-AMGEN-ARGSP2012083315

PATIENT
  Age: 61 Year
  Sex: Female

DRUGS (6)
  1. ENBREL [Suspect]
     Indication: RHEUMATOID ARTHRITIS
     Dosage: 50 MG, WEEKLY
     Route: 058
     Dates: start: 20090801
  2. INSULIN [Concomitant]
     Dosage: UNK
  3. LOSARTAN [Concomitant]
     Dosage: UNK
  4. OMEPRAZOLE [Concomitant]
     Dosage: UNK
  5. ARTRAIT                            /00113801/ [Concomitant]
     Dosage: UNK
  6. ARTRAIT [Concomitant]
     Dosage: UNK

REACTIONS (10)
  - Breast cancer [Recovered/Resolved]
  - Vision blurred [Not Recovered/Not Resolved]
  - Varicose vein [Recovered/Resolved]
  - Visual impairment [Not Recovered/Not Resolved]
  - Discomfort [Recovered/Resolved]
  - Arthritis [Recovered/Resolved]
  - Arthralgia [Recovered/Resolved]
  - Pain in extremity [Recovered/Resolved]
  - Injection site haematoma [Recovered/Resolved]
  - Injection site pain [Recovered/Resolved]
